FAERS Safety Report 4634499-2 (Version None)
Quarter: 2005Q2

REPORT INFORMATION
  Report Type: 
  Country: None (occurrence: None)
  Receive Date: 20050412
  Receipt Date: 20050401
  Transmission Date: 20051028
  Serious: Yes (Death, Hospitalization)
  Sender: FDA-Public Use
  Company Number: HQWYE244622MAR05

PATIENT
  Age: 69 Year
  Sex: Male

DRUGS (4)
  1. EFFEXOR [Suspect]
     Indication: DEPRESSION
  2. TENORMIN [Concomitant]
  3. XANAX [Concomitant]
  4. VASTAREL (TRIMETAZIDINE HYDROCHLORIDE) [Concomitant]

REACTIONS (13)
  - BLOOD IMMUNOGLOBULIN G INCREASED [None]
  - CHOLESTASIS [None]
  - CONFUSIONAL STATE [None]
  - CYTOLYTIC HEPATITIS [None]
  - DISEASE RECURRENCE [None]
  - DRUG RASH WITH EOSINOPHILIA AND SYSTEMIC SYMPTOMS [None]
  - ENCEPHALITIS [None]
  - EPIDERMAL NECROSIS [None]
  - HERPES ZOSTER [None]
  - HYPEREOSINOPHILIC SYNDROME [None]
  - MENINGITIS [None]
  - RENAL FAILURE [None]
  - TOXIC SKIN ERUPTION [None]
